FAERS Safety Report 21087047 (Version 2)
Quarter: 2022Q3

REPORT INFORMATION
  Report Type: Report from Study
  Country: US (occurrence: US)
  Receive Date: 20220715
  Receipt Date: 20220810
  Transmission Date: 20221027
  Serious: No
  Sender: FDA-Public Use
  Company Number: US-NOVARTISTESTPH-NVSC2022US160276

PATIENT
  Sex: Female

DRUGS (2)
  1. PIQRAY [Suspect]
     Active Substance: ALPELISIB
     Indication: Breast cancer
     Dosage: 150 MG, QD
     Route: 048
     Dates: start: 202205
  2. PIQRAY [Suspect]
     Active Substance: ALPELISIB
     Dosage: 300 MG (2 TABLETS)
     Route: 048

REACTIONS (1)
  - Diarrhoea [Recovering/Resolving]
